FAERS Safety Report 18594942 (Version 1)
Quarter: 2020Q4

REPORT INFORMATION
  Report Type: Spontaneous
  Country: US (occurrence: US)
  Receive Date: 20201209
  Receipt Date: 20201209
  Transmission Date: 20210114
  Serious: No
  Sender: FDA-Public Use
  Company Number: US-BIOGEN-2020BI00934926

PATIENT
  Sex: Female

DRUGS (1)
  1. TYSABRI [Suspect]
     Active Substance: NATALIZUMAB
     Indication: MULTIPLE SCLEROSIS
     Route: 042
     Dates: start: 20160315

REACTIONS (4)
  - Multiple sclerosis [Unknown]
  - Headache [Not Recovered/Not Resolved]
  - Stress [Not Recovered/Not Resolved]
  - Intervertebral disc protrusion [Unknown]
